FAERS Safety Report 7394279-4 (Version None)
Quarter: 2011Q2

REPORT INFORMATION
  Report Type: 
  Country: None (occurrence: None)
  Receive Date: 20110405
  Receipt Date: 20110329
  Transmission Date: 20111010
  Serious: Yes (Hospitalization)
  Sender: FDA-Public Use
  Company Number: FR-ROCHE-459041

PATIENT
  Age: 41 Year
  Sex: Male

DRUGS (2)
  1. RIVOTRIL [Suspect]
     Dosage: STRENGTH-2.5 MG/ML
     Route: 042
  2. SUBUTEX [Suspect]
     Route: 042

REACTIONS (2)
  - MEDICATION ERROR [None]
  - ENDOCARDITIS [None]
